FAERS Safety Report 8790886 (Version 1)
Quarter: 2012Q4

REPORT INFORMATION
  Report Type: Spontaneous
  Country: DE (occurrence: None)
  Receive Date: 20120910
  Receipt Date: 20120910
  Transmission Date: 20130627
  Serious: No
  Sender: FDA-Public Use
  Company Number: 2012210833

PATIENT
  Age: 58 Year
  Sex: Male
  Weight: 85 kg

DRUGS (3)
  1. AMPICILLIN SODIUM, SULBACTAM SODIUM [Suspect]
     Indication: APPENDICITIS PERFORATED
     Route: 042
     Dates: start: 20120215, end: 20120219
  2. CLINDAMYCIN [Suspect]
     Route: 048
     Dates: start: 20120110
  3. METRONIDAZOLE (METRONIDAZOLE) [Suspect]
     Route: 042
     Dates: start: 20120215, end: 20120219

REACTIONS (5)
  - Pseudomembranous colitis [None]
  - Renal failure [None]
  - Respiratory failure [None]
  - Soft tissue necrosis [None]
  - Soft tissue necrosis [None]
